FAERS Safety Report 18023083 (Version 1)
Quarter: 2020Q3

REPORT INFORMATION
  Report Type: Spontaneous
  Country: US (occurrence: US)
  Receive Date: 20200715
  Receipt Date: 20200715
  Transmission Date: 20201103
  Serious: No
  Sender: FDA-Public Use
  Company Number: US-JNJFOC-20200707087

PATIENT
  Age: 42 Year
  Sex: Female

DRUGS (2)
  1. MENS ROGAINE EXTRA STRENGTH [Suspect]
     Active Substance: MINOXIDIL
     Route: 061
  2. MENS ROGAINE EXTRA STRENGTH [Suspect]
     Active Substance: MINOXIDIL
     Indication: ALOPECIA
     Dosage: FEW DAYS
     Route: 061

REACTIONS (7)
  - Off label use [Unknown]
  - Insomnia [Unknown]
  - Palpitations [Unknown]
  - Ventricular extrasystoles [Unknown]
  - Feeling abnormal [Unknown]
  - Product use issue [Unknown]
  - Product use in unapproved indication [Unknown]
